FAERS Safety Report 7501048-0 (Version None)
Quarter: 2011Q2

REPORT INFORMATION
  Report Type: 
  Country: None (occurrence: None)
  Receive Date: 20110524
  Receipt Date: 20110518
  Transmission Date: 20111010
  Serious: Yes (Hospitalization)
  Sender: FDA-Public Use
  Company Number: US-GILEAD-2011-0038871

PATIENT
  Sex: Female

DRUGS (15)
  1. FONDAPARINUX SODIUM [Concomitant]
  2. PREDNISONE [Concomitant]
  3. ISONIAZID [Concomitant]
  4. LETAIRIS [Suspect]
     Indication: SYSTEMIC LUPUS ERYTHEMATOSUS
  5. MULTI-VITAMINS [Concomitant]
  6. TADALAFIL [Concomitant]
  7. PROTONIX [Concomitant]
  8. TREPROSTINIL [Concomitant]
  9. METOPROLOL [Concomitant]
  10. RIFAXIMIN [Concomitant]
  11. PYRIDOXINE [Concomitant]
  12. LETAIRIS [Suspect]
     Indication: PULMONARY HYPERTENSION
     Route: 048
     Dates: start: 20090107
  13. LASIX [Concomitant]
  14. FISH OIL [Concomitant]
  15. SPIRONOLACTONE [Concomitant]

REACTIONS (1)
  - PNEUMONIA [None]
